FAERS Safety Report 6080582-7 (Version None)
Quarter: 2009Q1

REPORT INFORMATION
  Report Type: 
  Country: None (occurrence: None)
  Receive Date: 20090217
  Receipt Date: 20090212
  Transmission Date: 20090719
  Serious: Yes (Other)
  Sender: FDA-Public Use
  Company Number: US-BIOGENIDEC-2008BI003379

PATIENT
  Age: 53 Year
  Sex: Female

DRUGS (2)
  1. AVONEX [Suspect]
     Indication: MULTIPLE SCLEROSIS
     Route: 030
     Dates: start: 20050513, end: 20060331
  2. AVONEX [Suspect]
     Route: 030
     Dates: start: 20070701

REACTIONS (3)
  - MALIGNANT MELANOMA STAGE I [None]
  - MULTIPLE SCLEROSIS [None]
  - SKIN CANCER [None]
